FAERS Safety Report 6417781-8 (Version None)
Quarter: 2009Q4

REPORT INFORMATION
  Report Type: 
  Country: None (occurrence: None)
  Receive Date: 20091028
  Receipt Date: 20091020
  Transmission Date: 20100525
  Serious: No
  Sender: FDA-Public Use
  Company Number: US-B.I. PHARMACEUTICALS,INC./RIDGEFIELD-2009-BP-12224BP

PATIENT
  Sex: Male

DRUGS (12)
  1. SPIRIVA [Suspect]
     Indication: EMPHYSEMA
     Dosage: 18 MCG
     Route: 055
     Dates: start: 20090901
  2. SPIRIVA [Suspect]
     Indication: SCAR
  3. VENTOLIN [Concomitant]
     Indication: DYSPNOEA
  4. PROVENTIL-HFA [Concomitant]
     Indication: DYSPNOEA
  5. SEREVENT [Concomitant]
     Indication: DYSPNOEA
  6. MELOXICAM (GENERIC) [Concomitant]
     Indication: ARTHRITIS
  7. LISINOPRIL [Concomitant]
     Indication: HYPERTENSION
  8. ESZOPICLONE [Concomitant]
  9. GABAPENTIN [Concomitant]
  10. PAROXEPINE [Concomitant]
  11. FINASTERIDE [Concomitant]
     Indication: BENIGN PROSTATIC HYPERPLASIA
  12. OMEPRAZOLE [Concomitant]
     Indication: GASTROOESOPHAGEAL REFLUX DISEASE

REACTIONS (3)
  - COUGH [None]
  - DYSPNOEA [None]
  - WHEEZING [None]
